FAERS Safety Report 9921342 (Version 1)
Quarter: 2014Q1

REPORT INFORMATION
  Report Type: Spontaneous
  Country: DZ (occurrence: DZ)
  Receive Date: 20140225
  Receipt Date: 20140225
  Transmission Date: 20141002
  Serious: Yes (Other)
  Sender: FDA-Public Use
  Company Number: DZ-ROCHE-1354874

PATIENT
  Age: 59 Year
  Sex: Male

DRUGS (4)
  1. LUCENTIS [Suspect]
     Indication: RETINAL VEIN OCCLUSION
     Route: 050
     Dates: start: 201307
  2. LUCENTIS [Suspect]
     Route: 050
     Dates: start: 201309
  3. GARDENALE [Concomitant]
  4. TEGRETOL [Concomitant]

REACTIONS (1)
  - Macular oedema [Not Recovered/Not Resolved]
